FAERS Safety Report 4420947-X (Version None)
Quarter: 2004Q3

REPORT INFORMATION
  Report Type: 
  Country: None (occurrence: None)
  Receive Date: 20040809
  Receipt Date: 20040726
  Transmission Date: 20050211
  Serious: Yes (Hospitalization, Other)
  Sender: FDA-Public Use
  Company Number: SP-200001799

PATIENT
  Sex: Male
  Weight: 87 kg

DRUGS (14)
  1. REMICADE [Suspect]
     Route: 041
     Dates: start: 20000526
  2. REMICADE [Suspect]
     Route: 041
     Dates: start: 20000526
  3. REMICADE [Suspect]
     Indication: CROHN'S DISEASE
     Route: 041
     Dates: start: 20000526
  4. METRONIDAZOLE [Concomitant]
     Route: 065
  5. MESALAMINE [Concomitant]
     Route: 065
  6. PREDNISONE TAB [Concomitant]
     Route: 065
  7. RANITIDINE [Concomitant]
     Route: 065
  8. ISONIAZID [Concomitant]
     Route: 065
  9. PYRAZINAMIDE [Concomitant]
     Route: 065
  10. RIFAMPICINE [Concomitant]
     Route: 065
  11. ETHAMBUTOL HCL [Concomitant]
     Route: 065
  12. STREPTOMYCIN [Concomitant]
     Route: 065
  13. LEVOFLOXACIN [Concomitant]
     Route: 065
  14. STEROIDS [Concomitant]

REACTIONS (18)
  - ACIDOSIS [None]
  - ANAL FISTULA [None]
  - ANION GAP NORMAL [None]
  - BLOOD FIBRINOGEN INCREASED [None]
  - CALCINOSIS [None]
  - DISSEMINATED TUBERCULOSIS [None]
  - HEPATITIS CHOLESTATIC [None]
  - HYPOCHROMIC ANAEMIA [None]
  - HYPOKALAEMIA [None]
  - INTESTINAL FISTULA [None]
  - NEPHRITIS AUTOIMMUNE [None]
  - NEPHRITIS INTERSTITIAL [None]
  - PANCREATITIS CHRONIC [None]
  - PLEURAL EFFUSION [None]
  - POLYURIA [None]
  - PURULENT DISCHARGE [None]
  - RENAL IMPAIRMENT [None]
  - SCAN ABDOMEN ABNORMAL [None]
